FAERS Safety Report 5512640-7 (Version None)
Quarter: 2007Q4

REPORT INFORMATION
  Report Type: 
  Country: None (occurrence: None)
  Receive Date: 20071107
  Receipt Date: 20071029
  Transmission Date: 20080405
  Serious: Yes (Other)
  Sender: FDA-Public Use
  Company Number: 2007SP019744

PATIENT
  Age: 1 Day
  Sex: Male
  Weight: 3.25 kg

DRUGS (2)
  1. PEG-INTRON [Suspect]
     Indication: DRUG USE FOR UNKNOWN INDICATION
     Dates: start: 20060308, end: 20061028
  2. REBETOL [Suspect]
     Dates: start: 20060308, end: 20061028

REACTIONS (4)
  - CARDIAC MURMUR [None]
  - NEONATAL DISORDER [None]
  - PREMATURE BABY [None]
  - TRANSMISSION OF DRUG VIA SEMEN [None]
